FAERS Safety Report 24732167 (Version 2)
Quarter: 2025Q1

REPORT INFORMATION
  Report Type: Report from Study
  Country: JP (occurrence: JP)
  Receive Date: 20241213
  Receipt Date: 20250108
  Transmission Date: 20250409
  Serious: Yes (Hospitalization)
  Sender: EISAI
  Company Number: JP-Eisai-202411920_LEQ_P_1

PATIENT
  Age: 78 Year
  Sex: Male
  Weight: 55 kg

DRUGS (7)
  1. LEQEMBI [Suspect]
     Active Substance: LECANEMAB-IRMB
     Indication: Dementia Alzheimer^s type
     Dosage: DOSE AND FREQUENCY UNKNOWN
     Route: 042
     Dates: start: 20240807, end: 20241127
  2. REPAGLINIDE [Concomitant]
     Active Substance: REPAGLINIDE
  3. PREDONINE [Concomitant]
     Active Substance: PREDNISOLONE
  4. LANSOPRAZOLE [Concomitant]
     Active Substance: LANSOPRAZOLE
  5. BENZBROMARONE [Concomitant]
     Active Substance: BENZBROMARONE
  6. METFORMIN HYDROCHLORIDE\VILDAGLIPTIN [Concomitant]
     Active Substance: METFORMIN HYDROCHLORIDE\VILDAGLIPTIN
     Dosage: DOSE UNKNOWN
  7. SENNOSIDES [Concomitant]
     Active Substance: SENNOSIDES

REACTIONS (1)
  - Lacunar infarction [Not Recovered/Not Resolved]

NARRATIVE: CASE EVENT DATE: 20241207
